FAERS Safety Report 15839512 (Version 1)
Quarter: 2019Q1

REPORT INFORMATION
  Report Type: Spontaneous
  Country: US (occurrence: US)
  Receive Date: 20190117
  Receipt Date: 20190117
  Transmission Date: 20190417
  Serious: No
  Sender: FDA-Public Use
  Company Number: US-SIGMAPHARM LABORATORIES, LLC-2018SIG00029

PATIENT
  Sex: Female
  Weight: 102.04 kg

DRUGS (11)
  1. VITAMIN B1 [Concomitant]
     Active Substance: THIAMINE HYDROCHLORIDE
  2. HYDROCHLOROTHIAZIDE. [Concomitant]
     Active Substance: HYDROCHLOROTHIAZIDE
     Dosage: 25 MG, 1X/DAY
  3. OMEPRAZOLE. [Concomitant]
     Active Substance: OMEPRAZOLE
  4. LIOTHYRONINE SODIUM. [Suspect]
     Active Substance: LIOTHYRONINE SODIUM
     Indication: HYPOTHYROIDISM
     Dosage: 25 ?G, 1X/DAY
     Route: 048
     Dates: start: 2011, end: 2011
  5. PROPRANOLOL [Concomitant]
     Active Substance: PROPRANOLOL HYDROCHLORIDE
     Dosage: 80 MG, 1X/DAY AT NIGHT
  6. LINZESS [Concomitant]
     Active Substance: LINACLOTIDE
  7. BIOTIN [Concomitant]
     Active Substance: BIOTIN
  8. SYNTHROID [Concomitant]
     Active Substance: LEVOTHYROXINE SODIUM
  9. MIRALAX [Concomitant]
     Active Substance: POLYETHYLENE GLYCOL 3350
     Dosage: UNK
  10. VIVELLE-DOT [Concomitant]
     Active Substance: ESTRADIOL
     Dosage: 0.5 MG PATCH EVERY 72 HOURS
  11. VITAMIN D2 [Concomitant]
     Active Substance: ERGOCALCIFEROL
     Dosage: 50000 IU, 1X/WEEK

REACTIONS (5)
  - Allergic reaction to excipient [Recovered/Resolved]
  - Feeling abnormal [Recovered/Resolved]
  - Weight increased [Not Recovered/Not Resolved]
  - Lethargy [Recovered/Resolved]
  - Somnolence [Recovered/Resolved]

NARRATIVE: CASE EVENT DATE: 2011
